FAERS Safety Report 6199516-X (Version None)
Quarter: 2009Q2

REPORT INFORMATION
  Report Type: 
  Country: None (occurrence: None)
  Receive Date: 20090522
  Receipt Date: 20090514
  Transmission Date: 20091009
  Serious: Yes (Other)
  Sender: FDA-Public Use
  Company Number: B0575180A

PATIENT
  Age: 49 Year
  Sex: Female

DRUGS (1)
  1. NIQUITIN [Suspect]
     Indication: SMOKING CESSATION THERAPY
     Route: 065
     Dates: start: 20040101

REACTIONS (8)
  - DIARRHOEA [None]
  - HEADACHE [None]
  - INTENTIONAL DRUG MISUSE [None]
  - MEDICATION ERROR [None]
  - NAUSEA [None]
  - NICOTINE DEPENDENCE [None]
  - TREMOR [None]
  - VERTIGO [None]
